FAERS Safety Report 6635959-5 (Version None)
Quarter: 2010Q1

REPORT INFORMATION
  Report Type: 
  Country: None (occurrence: None)
  Receive Date: 20100225
  Receipt Date: 20090325
  Transmission Date: 20100710
  Serious: Yes (Hospitalization, Other)
  Sender: FDA-Public Use
  Company Number: US-JNJFOC-20090307030

PATIENT
  Age: 66 Year
  Sex: Female
  Weight: 64.5 kg

DRUGS (8)
  1. MOTRIN [Suspect]
     Indication: MUSCULOSKELETAL STIFFNESS
     Dosage: 400 MG, 1 IN 1 AS NECESSARY, ORAL
     Route: 048
     Dates: start: 20081218
  2. MOTRIN [Suspect]
     Indication: PROPHYLAXIS
     Dosage: 400 MG, 1 IN 1 AS NECESSARY, ORAL
     Route: 048
     Dates: start: 20081218
  3. BLINDED SCH 503034 (INVESTIGATIONAL DRUG) UNSPECIFIED [Suspect]
     Indication: HEPATITIS C
     Dosage: 800 MG, 3 IN 1 DAY, ORAL
     Route: 048
     Dates: start: 20090115, end: 20090305
  4. BLINDED SCH 503034 (INVESTIGATIONAL DRUG) UNSPECIFIED [Suspect]
     Indication: HEPATITIS C
     Dosage: 800 MG, 3 IN 1 DAY, ORAL
     Route: 048
     Dates: start: 20090307
  5. PEG-INTRON [Suspect]
     Indication: HEPATITIS C
     Dosage: 120 UG, 1 IN 1 WEEK, SUBCUTANEOUS; SEE IMAGE
     Route: 058
     Dates: start: 20081218, end: 20090305
  6. PEG-INTRON [Suspect]
     Indication: HEPATITIS C
     Dosage: 120 UG, 1 IN 1 WEEK, SUBCUTANEOUS; SEE IMAGE
     Route: 058
     Dates: start: 20090307
  7. RIBAVIRIN [Suspect]
     Indication: HEPATITIS C
     Dosage: 800 MG, 1 IN 1 DAY, ORAL; SEE IMAGE
     Route: 048
     Dates: start: 20081218, end: 20090305
  8. RIBAVIRIN [Suspect]
     Indication: HEPATITIS C
     Dosage: 800 MG, 1 IN 1 DAY, ORAL; SEE IMAGE
     Route: 048
     Dates: start: 20090307

REACTIONS (1)
  - GASTRITIS [None]
